FAERS Safety Report 11060651 (Version 1)
Quarter: 2015Q2

REPORT INFORMATION
  Report Type: Spontaneous
  Country: US (occurrence: US)
  Receive Date: 20150423
  Receipt Date: 20150423
  Transmission Date: 20150821
  Serious: No
  Sender: FDA-Public Use
  Company Number: US-009507513-1504USA018310

PATIENT
  Age: 26 Year
  Sex: Male

DRUGS (2)
  1. LACOSAMIDE [Concomitant]
     Active Substance: LACOSAMIDE
     Indication: EPILEPSY
  2. TEMODAR [Suspect]
     Active Substance: TEMOZOLOMIDE
     Indication: OLIGOASTROCYTOMA
     Dosage: 325 MG, QD FOR 5 DAYS EVERY 28 DAYS
     Route: 048

REACTIONS (1)
  - Type IV hypersensitivity reaction [Recovered/Resolved]
